FAERS Safety Report 4508068-9 (Version None)
Quarter: 2004Q4

REPORT INFORMATION
  Report Type: 
  Country: None (occurrence: None)
  Receive Date: 20041123
  Receipt Date: 20031007
  Transmission Date: 20050328
  Serious: No
  Sender: FDA-Public Use
  Company Number: US-GLAXOSMITHKLINE-A0429233A

PATIENT
  Age: 48 Year
  Sex: Female

DRUGS (4)
  1. WELLBUTRIN [Suspect]
     Indication: DEPRESSION
     Dosage: 150MG PER DAY
     Route: 048
     Dates: start: 20031004
  2. LEXAPRO [Concomitant]
  3. BUSPAR [Concomitant]
  4. MULTI-VITAMIN [Concomitant]

REACTIONS (2)
  - DYSGEUSIA [None]
  - TONGUE COATED [None]
